FAERS Safety Report 12906190 (Version 1)
Quarter: 2016Q4

REPORT INFORMATION
  Report Type: Spontaneous
  Country: US (occurrence: US)
  Receive Date: 20161102
  Receipt Date: 20161102
  Transmission Date: 20170207
  Serious: No
  Sender: FDA-Public Use
  Company Number: None

PATIENT
  Age: 70 Year
  Sex: Female
  Weight: 51.3 kg

DRUGS (9)
  1. MULTI VITAMINE [Concomitant]
  2. LEVOTHROXIN [Concomitant]
  3. FENTANYL 50MCG/HOUR PAT MAL GENER. FOR - DURAGESIC 50MCG/HRS D/S MALLINCKRODT [Suspect]
     Active Substance: FENTANYL
     Indication: BACK PAIN
     Dosage: 1 PATCH TOPICALLY EVERY 72 HRS. EVERY 72 HRS TOPICALLY
     Route: 061
     Dates: start: 20161009, end: 20161011
  4. ATORVASTATIN [Concomitant]
     Active Substance: ATORVASTATIN
  5. FISH OIL [Concomitant]
     Active Substance: FISH OIL
  6. IRBESARTAN. [Concomitant]
     Active Substance: IRBESARTAN
  7. FELODIPINE. [Concomitant]
     Active Substance: FELODIPINE
  8. OXYCOD/ACETAM [Concomitant]
     Active Substance: ACETAMINOPHEN\OXYCODONE HYDROCHLORIDE
  9. LOW DOSE ASPRIN [Concomitant]
     Active Substance: ASPIRIN

REACTIONS (6)
  - Somnolence [None]
  - Nausea [None]
  - Abdominal pain [None]
  - Vomiting [None]
  - Dizziness [None]
  - Dysarthria [None]
